FAERS Safety Report 4332391-4 (Version None)
Quarter: 2004Q2

REPORT INFORMATION
  Report Type: 
  Country: None (occurrence: None)
  Receive Date: 20040401
  Receipt Date: 20040319
  Transmission Date: 20050107
  Serious: Yes (Hospitalization)
  Sender: FDA-Public Use
  Company Number: A008998

PATIENT
  Age: 65 Year
  Sex: Female

DRUGS (5)
  1. SERTRALINE HCL [Suspect]
     Indication: DEPRESSION
     Dosage: 50 MG (DAILY), ORAL
     Route: 048
     Dates: start: 19970801
  2. ATORVASTATIN (ATORVASTATIN) [Suspect]
     Indication: DYSLIPIDAEMIA
     Dosage: 10 MG (DAILY), ORAL
     Route: 048
     Dates: start: 20011011, end: 20040201
  3. CLOXAZOLAM (CLOXAZOLAM) [Concomitant]
  4. LOSARTAN (LOSARTAN) [Concomitant]
  5. LEVOTHYROXIN (LEVOTHYROXINE) [Concomitant]

REACTIONS (1)
  - CORONARY ARTERY SURGERY [None]
